FAERS Safety Report 19869001 (Version 1)
Quarter: 2021Q3

REPORT INFORMATION
  Report Type: Spontaneous
  Country: PE (occurrence: PE)
  Receive Date: 20210922
  Receipt Date: 20210922
  Transmission Date: 20211014
  Serious: Yes (Hospitalization, Disabling)
  Sender: FDA-Public Use
  Company Number: PE-ROCHE-2916432

PATIENT
  Age: 61 Year

DRUGS (1)
  1. RITUXIMAB. [Suspect]
     Active Substance: RITUXIMAB
     Indication: DEMYELINATING POLYNEUROPATHY
     Route: 042
     Dates: start: 20210816

REACTIONS (12)
  - Wound [Unknown]
  - Hypoaesthesia [Unknown]
  - Coordination abnormal [Unknown]
  - Paraesthesia [Unknown]
  - Pain [Unknown]
  - Pyrexia [Unknown]
  - Off label use [Unknown]
  - Cerebral disorder [Unknown]
  - Gait disturbance [Unknown]
  - Headache [Unknown]
  - Pain in extremity [Unknown]
  - Fall [Unknown]
